FAERS Safety Report 10982365 (Version 1)
Quarter: 2015Q2

REPORT INFORMATION
  Report Type: Spontaneous
  Country: CA (occurrence: CA)
  Receive Date: 20150403
  Receipt Date: 20150403
  Transmission Date: 20150821
  Serious: Yes (Other)
  Sender: FDA-Public Use
  Company Number: CA-ROCHE-1548522

PATIENT
  Age: 60 Year
  Sex: Male
  Weight: 87 kg

DRUGS (4)
  1. SOVALDI [Suspect]
     Active Substance: SOFOSBUVIR
     Indication: HEPATITIS C
     Route: 048
     Dates: start: 20141003, end: 20141226
  2. RIBAVIRIN. [Suspect]
     Active Substance: RIBAVIRIN
     Indication: HEPATITIS C
     Route: 048
     Dates: start: 20141003, end: 20141226
  3. PEG-INTERFERON ALFA 2A [Suspect]
     Active Substance: PEGINTERFERON ALFA-2A
     Indication: HEPATITIS C
     Route: 058
     Dates: start: 20141003, end: 20141219
  4. APO-OXAZEPAM [Concomitant]
     Route: 065
     Dates: start: 20141021

REACTIONS (12)
  - Pallor [Unknown]
  - Arthralgia [Unknown]
  - Irritability [Unknown]
  - Hepatitis C [Unknown]
  - Pyrexia [Unknown]
  - Drug ineffective [Unknown]
  - Myalgia [Unknown]
  - Chills [Unknown]
  - Pruritus [Unknown]
  - Affect lability [Unknown]
  - Headache [Unknown]
  - Nausea [Recovered/Resolved]

NARRATIVE: CASE EVENT DATE: 201411
